FAERS Safety Report 16464812 (Version 2)
Quarter: 2019Q3

REPORT INFORMATION
  Report Type: Report from Study
  Country: EE (occurrence: EE)
  Receive Date: 20190621
  Receipt Date: 20190701
  Transmission Date: 20191004
  Serious: Yes (Other)
  Sender: FDA-Public Use
  Company Number: PHHY2019EE003690

PATIENT
  Age: 56 Year
  Sex: Female

DRUGS (6)
  1. COSENTYX [Suspect]
     Active Substance: SECUKINUMAB
     Indication: PSORIATIC ARTHROPATHY
     Dosage: 150 MG, QMO
     Route: 058
     Dates: start: 20170130, end: 20170226
  2. ESCITALOPRAMUM [Concomitant]
     Indication: DEPRESSION
     Dosage: 10 MG/1X, UNK
     Route: 065
  3. COSENTYX [Suspect]
     Active Substance: SECUKINUMAB
     Dosage: 150 MG, PER APPLICATION
     Route: 065
     Dates: start: 20170227
  4. NEBIVOLOLUM [Concomitant]
     Indication: HYPERTENSION
     Dosage: 5 MG/1X, UNK
     Route: 065
  5. ESCITALOPRAMUM [Concomitant]
     Indication: ANXIETY
  6. VITAMIN D [Concomitant]
     Active Substance: VITAMIN D NOS
     Indication: PRODUCT USED FOR UNKNOWN INDICATION
     Dosage: UNK
     Route: 065

REACTIONS (9)
  - Psoriatic arthropathy [Recovered/Resolved]
  - Mycoplasma test positive [Unknown]
  - Chlamydia test positive [Unknown]
  - Upper respiratory tract infection [Recovered/Resolved]
  - Cough [Unknown]
  - C-reactive protein increased [Unknown]
  - Vision blurred [Unknown]
  - Rhinorrhoea [Unknown]
  - Cataract [Recovering/Resolving]

NARRATIVE: CASE EVENT DATE: 201808
